FAERS Safety Report 4897102-2 (Version None)
Quarter: 2006Q1

REPORT INFORMATION
  Report Type: 
  Country: None (occurrence: None)
  Receive Date: 20060127
  Receipt Date: 20060117
  Transmission Date: 20060701
  Serious: Yes (Hospitalization)
  Sender: FDA-Public Use
  Company Number: 2006010076

PATIENT
  Age: 55 Year
  Sex: Female
  Weight: 56 kg

DRUGS (3)
  1. ACTIFED JOUR ET NUIT (DAY)  (PARACETAMOL, PSEUDOEPHEDRINE) [Suspect]
     Indication: INFLUENZA
     Dosage: 2 TABLETS DAILY, ORAL
     Route: 048
     Dates: start: 20051212, end: 20051216
  2. ACTIFED NIGHTTIME (DIPHENHYDRAMINE, PARACETAMOL) [Suspect]
     Indication: INFLUENZA
     Dosage: 2 TABLETS DAILY, ORAL
     Route: 048
     Dates: start: 20051212, end: 20051216
  3. TAMOXIFEN CITRATE [Concomitant]

REACTIONS (3)
  - CONFUSIONAL STATE [None]
  - GRAND MAL CONVULSION [None]
  - PARTIAL SEIZURES [None]
